FAERS Safety Report 12334798 (Version 1)
Quarter: 2016Q2

REPORT INFORMATION
  Report Type: Spontaneous
  Country: DE (occurrence: DE)
  Receive Date: 20160504
  Receipt Date: 20160504
  Transmission Date: 20160815
  Serious: Yes (Hospitalization)
  Sender: FDA-Public Use
  Company Number: DE-TEVA-655203GER

PATIENT
  Age: 54 Year
  Sex: Male
  Weight: 71 kg

DRUGS (10)
  1. PANTOPRAZOLE SODIUM. [Concomitant]
     Active Substance: PANTOPRAZOLE SODIUM
     Dosage: 1 DOSAGE FORMS DAILY;
  2. ALLOPURINOL 100 MG [Concomitant]
     Active Substance: ALLOPURINOL
     Dosage: 1 DOSAGE FORMS DAILY;
  3. AMIODARON 200 MG [Suspect]
     Active Substance: AMIODARONE
     Dosage: 3 DOSAGE FORMS DAILY;
  4. TOREM 10 MG [Concomitant]
     Active Substance: TORSEMIDE
     Dosage: DAILY DOSE: 1 DF DOSAGE FORM EVERY DAY
  5. NOVAMINSULFON TROPFEN 30 [Concomitant]
     Dosage: DAILY DOSE: 1 DF DOSAGE FORM EVERY DAY
  6. ATORVASTATIN 40 MG [Concomitant]
     Active Substance: ATORVASTATIN
     Dosage: 1 DOSAGE FORMS DAILY;
  7. ZOPICLON 7.5 [Concomitant]
     Active Substance: ZOPICLONE
     Dosage: 1 DOSAGE FORMS DAILY;
  8. ACETYLSALICYLSAEURE 100 MG [Concomitant]
     Dosage: 1 DOSAGE FORMS DAILY;
  9. SPIRONOLACTON 50 MG [Concomitant]
     Dosage: 1 DOSAGE FORMS DAILY;
  10. MAGNESIUM [Concomitant]
     Active Substance: MAGNESIUM
     Dosage: DAILY DOSE: 1 DF DOSAGE FORM EVERY DAY

REACTIONS (2)
  - Infection [Recovering/Resolving]
  - Liver disorder [Recovering/Resolving]

NARRATIVE: CASE EVENT DATE: 20160222
